FAERS Safety Report 9979341 (Version 1)
Quarter: 2014Q1

REPORT INFORMATION
  Report Type: Spontaneous
  Country: US (occurrence: US)
  Receive Date: 20140306
  Receipt Date: 20140306
  Transmission Date: 20141002
  Serious: No
  Sender: FDA-Public Use
  Company Number: US-ABBVIE-13P-163-1172952-00

PATIENT
  Sex: Female
  Weight: 68.55 kg

DRUGS (15)
  1. HUMIRA [Suspect]
     Indication: PSORIATIC ARTHROPATHY
     Dates: start: 201305, end: 201309
  2. HUMIRA [Suspect]
     Dates: start: 201309
  3. BLOOD THINNERS [Concomitant]
     Indication: PRODUCT USED FOR UNKNOWN INDICATION
  4. CELEBREX [Concomitant]
     Indication: PSORIATIC ARTHROPATHY
  5. LIALDA [Concomitant]
     Indication: COLITIS ULCERATIVE
  6. TIZANIDINE [Concomitant]
     Indication: MUSCLE SPASMS
  7. VYVANSE [Concomitant]
     Indication: ATTENTION DEFICIT/HYPERACTIVITY DISORDER
  8. DICYLCOMINE [Concomitant]
     Indication: GASTROINTESTINAL PAIN
  9. DICYLCOMINE [Concomitant]
     Indication: COLITIS ULCERATIVE
  10. CYMBALTA [Concomitant]
     Indication: DEPRESSION
  11. ESTRADIOL [Concomitant]
     Indication: HORMONE REPLACEMENT THERAPY
  12. XANAX [Concomitant]
     Indication: ANXIETY
  13. XANAX [Concomitant]
     Indication: PANIC ATTACK
  14. ZYRTEC [Concomitant]
     Indication: HYPERSENSITIVITY
  15. MULTIVITAMIN [Concomitant]
     Indication: PRODUCT USED FOR UNKNOWN INDICATION

REACTIONS (4)
  - Incorrect dose administered [Not Recovered/Not Resolved]
  - Device malfunction [Not Recovered/Not Resolved]
  - Pain [Not Recovered/Not Resolved]
  - Injection site haemorrhage [Not Recovered/Not Resolved]
